FAERS Safety Report 21766139 (Version 1)
Quarter: 2022Q4

REPORT INFORMATION
  Report Type: Spontaneous
  Country: FR (occurrence: FR)
  Receive Date: 20221222
  Receipt Date: 20221222
  Transmission Date: 20230113
  Serious: Yes (Hospitalization)
  Sender: FDA-Public Use
  Company Number: None

PATIENT
  Age: 93 Year
  Sex: Female

DRUGS (2)
  1. NOREPINEPHRINE [Suspect]
     Active Substance: NOREPINEPHRINE
     Indication: Product used for unknown indication
     Dosage: UNK
     Route: 042
     Dates: start: 20211125, end: 20211125
  2. TRANEXAMIC ACID [Concomitant]
     Active Substance: TRANEXAMIC ACID
     Dosage: UNK
     Route: 042

REACTIONS (2)
  - Wrong product administered [Recovered/Resolved]
  - Stress cardiomyopathy [Recovered/Resolved]

NARRATIVE: CASE EVENT DATE: 20211125
